FAERS Safety Report 6661542-1 (Version None)
Quarter: 2010Q1

REPORT INFORMATION
  Report Type: 
  Country: None (occurrence: None)
  Receive Date: 20100329
  Receipt Date: 20100317
  Transmission Date: 20100710
  Serious: Yes (Hospitalization)
  Sender: FDA-Public Use
  Company Number: DSU-2010-01158

PATIENT
  Sex: Male
  Weight: 74.8435 kg

DRUGS (9)
  1. BENICAR HCT [Suspect]
     Indication: HYPERTENSION
     Dosage: 20/12.5MG (QD), PER ORAL; 20 MG (20 MG , QD), PER ORAL
     Route: 048
     Dates: start: 20080101, end: 20080101
  2. BENICAR HCT [Suspect]
     Indication: HYPERTENSION
     Dosage: 20/12.5MG (QD), PER ORAL; 20 MG (20 MG , QD), PER ORAL
     Route: 048
     Dates: start: 20080101, end: 20100201
  3. BENICAR [Suspect]
     Indication: HYPERTENSION
     Dosage: 20 MG (20 MG, QD) , PER ORAL; 20/12.5MG (QD), PER ORAL
     Route: 048
     Dates: start: 20070101, end: 20080101
  4. BENICAR [Suspect]
     Indication: HYPERTENSION
     Dosage: 20 MG (20 MG, QD) , PER ORAL; 20/12.5MG (QD), PER ORAL
     Route: 048
     Dates: start: 20080101, end: 20100101
  5. AMLODIPINE BESYLATE [Suspect]
     Indication: HYPERTENSION
     Dosage: 5 MG (5 MG, QD), PER ORAL
     Route: 048
     Dates: start: 20100101, end: 20100101
  6. PLAVIX [Concomitant]
  7. NEFAZODONE HCL [Concomitant]
  8. LIPITOR [Concomitant]
  9. VITAMINS (VITAMINS /90003601/) [Concomitant]

REACTIONS (5)
  - BLOOD PRESSURE INCREASED [None]
  - CEREBROVASCULAR ACCIDENT [None]
  - EXPIRED DRUG ADMINISTERED [None]
  - FEELING HOT [None]
  - SWELLING [None]
